FAERS Safety Report 4492639-2 (Version None)
Quarter: 2004Q4

REPORT INFORMATION
  Report Type: 
  Country: None (occurrence: None)
  Receive Date: 20041029
  Receipt Date: 20041021
  Transmission Date: 20050328
  Serious: Yes (Death, Hospitalization)
  Sender: FDA-Public Use
  Company Number: 2004-10-1316

PATIENT
  Age: 57 Year
  Sex: Female

DRUGS (9)
  1. PEG-INTRON [Suspect]
     Indication: HEPATITIS C
     Dosage: 120 MCG QW SUBCUTANEOUS
     Route: 058
     Dates: start: 20040401, end: 20041005
  2. REBETOL [Suspect]
     Indication: HEPATITIS C
     Dosage: 800 MG QD ORAL
     Route: 048
     Dates: start: 20040401, end: 20041005
  3. ESSENTIALE FORTE [Concomitant]
  4. FURON (FUROSEMIDE) [Concomitant]
  5. SPIRONOLACTONE [Concomitant]
  6. ZOPICLONE [Concomitant]
  7. METOPROLOL SUCCINATE [Concomitant]
  8. PERINDOPRIL [Concomitant]
  9. LACTULOSE [Concomitant]

REACTIONS (5)
  - ACUTE VESTIBULAR SYNDROME [None]
  - ASTHENIA [None]
  - CEREBROVASCULAR ACCIDENT [None]
  - DIZZINESS [None]
  - NYSTAGMUS [None]
